FAERS Safety Report 6183302-0 (Version None)
Quarter: 2009Q2

REPORT INFORMATION
  Report Type: 
  Country: None (occurrence: None)
  Receive Date: 20090506
  Receipt Date: 20090423
  Transmission Date: 20091009
  Serious: Yes (Hospitalization)
  Sender: FDA-Public Use
  Company Number: PAR_02949_2009

PATIENT
  Age: 57 Year
  Sex: Female

DRUGS (3)
  1. METHYLPREDNISOLONE [Suspect]
     Indication: MULTIPLE SCLEROSIS RELAPSE
     Dosage: (1000 MG, [3 COURSES] INTRAVENOUS BOLUS)
     Route: 040
     Dates: start: 20010301, end: 20010301
  2. METHYLPREDNISOLONE [Suspect]
     Indication: MULTIPLE SCLEROSIS RELAPSE
     Dosage: (1000 MG, [3 COURSES] INTRAVENOUS BOLUS)
     Route: 040
     Dates: start: 20020301, end: 20020301
  3. METHYLPREDNISOLONE [Suspect]
     Indication: MULTIPLE SCLEROSIS RELAPSE
     Dosage: (1000 MG, [3 COURSES] INTRAVENOUS BOLUS)
     Route: 040
     Dates: start: 20030801, end: 20030801

REACTIONS (4)
  - HEPATIC NECROSIS [None]
  - HEPATITIS TOXIC [None]
  - HYPERPLASIA [None]
  - SERUM FERRITIN INCREASED [None]
